FAERS Safety Report 9759599 (Version 1)
Quarter: 2013Q4

REPORT INFORMATION
  Report Type: Spontaneous
  Country: US (occurrence: US)
  Receive Date: 20131216
  Receipt Date: 20131216
  Transmission Date: 20140711
  Serious: No
  Sender: FDA-Public Use
  Company Number: US-GILEAD-2010-0028229

PATIENT
  Sex: Female

DRUGS (12)
  1. LETAIRIS [Suspect]
     Indication: PULMONARY ARTERIAL HYPERTENSION
     Route: 048
     Dates: start: 20100210
  2. REVATIO [Concomitant]
  3. ATENOLOL [Concomitant]
  4. PREDNISONE [Concomitant]
  5. EFFEXOR [Concomitant]
  6. ACIPHEX [Concomitant]
  7. LEVOTHYROXINE [Concomitant]
  8. MIRAPEX [Concomitant]
  9. IMITREX [Concomitant]
  10. ADVIL [Concomitant]
  11. DARVOCET [Concomitant]
  12. MULTIVITAMIN [Concomitant]

REACTIONS (1)
  - Dyspnoea [Unknown]
